FAERS Safety Report 6667089-0 (Version None)
Quarter: 2010Q2

REPORT INFORMATION
  Report Type: 
  Country: None (occurrence: None)
  Receive Date: 20100405
  Receipt Date: 20100326
  Transmission Date: 20101027
  Serious: Yes (Other)
  Sender: FDA-Public Use
  Company Number: JP-BRISTOL-MYERS SQUIBB COMPANY-14642219

PATIENT
  Age: 57 Year
  Sex: Male
  Weight: 78 kg

DRUGS (6)
  1. ERBITUX [Suspect]
     Indication: RECTAL CANCER
     Dosage: 485MG:1 IN 3 WK,16DEC-6JAN08(21D) 380MG:1 IN 1 WK,13JAN-19MAY09(125 DAYS) DOSE REDUCED TO 380MG
     Route: 042
     Dates: start: 20081209, end: 20090519
  2. IRINOTECAN HCL [Concomitant]
     Indication: RECTAL CANCER
     Dosage: 290MG-09DEC-09DEC08(1 IN 1 D) 230MG-13JAN09-(1 IN 3 WK)
     Route: 042
     Dates: start: 20081209
  3. FLUOROURACIL [Concomitant]
     Indication: RECTAL CANCER
     Dosage: 3800MG;13JAN09-INTRAVENOUS DRIP-580MG(1 IN 1 D) 4500MG:09-11DEC08(2D)09DEC-09DEC08-775MG(1 IN 1 WK)
     Route: 041
     Dates: start: 20081209
  4. LEUCOVORIN CALCIUM [Concomitant]
     Indication: RECTAL CANCER
     Dosage: 375MG 1IN 1 D;09-09DEC08(2D) 375MG 1 IN 3 WK, 13JAN2009
     Route: 042
     Dates: start: 20081209
  5. RESTAMIN [Concomitant]
     Indication: PREMEDICATION
     Dosage: FORM -TABS
     Route: 048
     Dates: start: 20081209, end: 20090519
  6. DEXART [Concomitant]
     Indication: PREMEDICATION
     Route: 042
     Dates: start: 20081209, end: 20090519

REACTIONS (2)
  - ACNE [None]
  - VISUAL ACUITY REDUCED [None]
